FAERS Safety Report 5505544-7 (Version None)
Quarter: 2007Q4

REPORT INFORMATION
  Report Type: 
  Country: None (occurrence: None)
  Receive Date: 20071102
  Receipt Date: 20071025
  Transmission Date: 20080405
  Serious: Yes (Hospitalization)
  Sender: FDA-Public Use
  Company Number: PE-PFIZER INC-2007090169

PATIENT
  Age: 68 Year
  Sex: Male

DRUGS (5)
  1. LIPITOR [Suspect]
     Indication: DYSLIPIDAEMIA
     Route: 048
     Dates: start: 20071001, end: 20071023
  2. ACETYLSALICYLIC ACID SRT [Concomitant]
  3. PLAVIX [Concomitant]
  4. ECOTRIN [Concomitant]
  5. ENALAPRIL MALEATE [Concomitant]

REACTIONS (5)
  - ABDOMINAL DISTENSION [None]
  - ANAEMIA [None]
  - DIARRHOEA [None]
  - PYREXIA [None]
  - TRACHEITIS [None]
